FAERS Safety Report 7232327-2 (Version None)
Quarter: 2011Q1

REPORT INFORMATION
  Report Type: 
  Country: None (occurrence: None)
  Receive Date: 20110106
  Receipt Date: 20101222
  Transmission Date: 20110831
  Serious: Yes (Hospitalization)
  Sender: FDA-Public Use
  Company Number: AUR-APL-2010-03268

PATIENT
  Age: 87 Year
  Sex: Female

DRUGS (4)
  1. HYDROCHLOROTHIAZIDE [Concomitant]
  2. DOXAZOSIN [Concomitant]
  3. IRBESARTAN [Concomitant]
  4. METFORMIN HCL [Suspect]
     Indication: DIABETES MELLITUS
     Dosage: ORAL
     Route: 048
     Dates: start: 20100101, end: 20101211

REACTIONS (5)
  - LACTIC ACIDOSIS [None]
  - DIARRHOEA [None]
  - VOMITING [None]
  - SHOCK [None]
  - RENAL FAILURE ACUTE [None]
